FAERS Safety Report 11268008 (Version 1)
Quarter: 2015Q3

REPORT INFORMATION
  Report Type: Spontaneous
  Country: US (occurrence: US)
  Receive Date: 20150713
  Receipt Date: 20150713
  Transmission Date: 20151125
  Serious: No
  Sender: FDA-Public Use
  Company Number: US-AMGEN-USASP2015069062

PATIENT
  Age: 29 Year
  Sex: Female

DRUGS (1)
  1. ENBREL [Suspect]
     Active Substance: ETANERCEPT
     Indication: ANKYLOSING SPONDYLITIS
     Dosage: 50 MG, QWK
     Route: 058
     Dates: start: 20150620, end: 20150627

REACTIONS (8)
  - Heart rate abnormal [Unknown]
  - Injection site pain [Unknown]
  - Influenza like illness [Unknown]
  - Adverse drug reaction [Unknown]
  - Injection site erythema [Unknown]
  - Body temperature abnormal [Unknown]
  - Asthenia [Unknown]
  - Injection site reaction [Unknown]

NARRATIVE: CASE EVENT DATE: 201506
